FAERS Safety Report 5090125-2 (Version None)
Quarter: 2006Q3

REPORT INFORMATION
  Report Type: 
  Country: None (occurrence: None)
  Receive Date: 20060828
  Receipt Date: 20060818
  Transmission Date: 20061208
  Serious: Yes (Hospitalization)
  Sender: FDA-Public Use
  Company Number: US-ROCHE-460204

PATIENT
  Age: 40 Year
  Sex: Female
  Weight: 48.5 kg

DRUGS (2)
  1. PEG-INTERFERON ALFA 2A (RO 25-8310) [Suspect]
     Route: 058
     Dates: start: 20041022, end: 20050930
  2. RIBAVIRIN [Suspect]
     Route: 048
     Dates: start: 20041022, end: 20050930

REACTIONS (1)
  - MENINGITIS VIRAL [None]
